FAERS Safety Report 8772395 (Version 2)
Quarter: 2012Q4

REPORT INFORMATION
  Report Type: 
  Country: AU (occurrence: AU)
  Receive Date: 20120905
  Receipt Date: 20120905
  Transmission Date: 20130627
  Serious: Yes (Other)
  Sender: FDA-Public Use
  Company Number: PHHY2012AU071439

PATIENT
  Age: 79 Year
  Sex: Male
  Weight: 167.5 kg

DRUGS (10)
  1. ACLASTA [Suspect]
     Indication: OSTEOPOROSIS
     Dosage: 5 mg, UNK
     Route: 042
     Dates: start: 20120813
  2. CARVEDILOL [Concomitant]
     Indication: CARDIAC DISORDER
     Dosage: 12.5 mg, BID
  3. CADUET [Concomitant]
     Indication: HYPERTENSION
     Dosage: 1 DF, QD
     Route: 048
     Dates: start: 2010
  4. DIAFORMIN [Concomitant]
     Indication: BLOOD CHOLESTEROL ABNORMAL
     Route: 048
     Dates: start: 2011
  5. DIAMICRON [Concomitant]
     Indication: DIABETES MELLITUS
     Dates: start: 2008
  6. FUROSEMIDE [Concomitant]
     Indication: CARDIAC DISORDER
     Dosage: 40 mg, every morning
     Dates: start: 2008
  7. NITROUS OXIDE [Concomitant]
  8. ZYDOL [Concomitant]
  9. SOMAC [Concomitant]
  10. PANADEINE FORTE [Concomitant]

REACTIONS (4)
  - Lethargy [Not Recovered/Not Resolved]
  - Decreased appetite [Unknown]
  - Nausea [Recovered/Resolved]
  - Diarrhoea [Recovering/Resolving]
